FAERS Safety Report 9703340 (Version 2)
Quarter: 2013Q4

REPORT INFORMATION
  Report Type: Spontaneous
  Country: TR (occurrence: TR)
  Receive Date: 20131122
  Receipt Date: 20131122
  Transmission Date: 20140711
  Serious: Yes (Other)
  Sender: FDA-Public Use
  Company Number: TR-AMGEN-TURSP2013035350

PATIENT
  Age: 43 Year
  Sex: Female

DRUGS (2)
  1. ENBREL [Suspect]
     Indication: RHEUMATOID ARTHRITIS
     Dosage: 25 MG, 2X/WEEK
     Route: 058
     Dates: start: 201008, end: 201108
  2. ENBREL [Suspect]
     Dosage: 50 MG, QWK
     Route: 058
     Dates: start: 20110825

REACTIONS (9)
  - Rheumatoid arthritis [Recovered/Resolved]
  - Anxiety [Not Recovered/Not Resolved]
  - Immune system disorder [Unknown]
  - Feeling hot [Recovered/Resolved]
  - Therapeutic response unexpected [Unknown]
  - Infection [Unknown]
  - Tonsillitis [Recovered/Resolved]
  - Sinusitis [Recovered/Resolved]
  - Depressed mood [Not Recovered/Not Resolved]
